FAERS Safety Report 8960457 (Version 1)
Quarter: 2012Q4

REPORT INFORMATION
  Report Type: Spontaneous
  Country: GB (occurrence: None)
  Receive Date: 20121203
  Receipt Date: 20121203
  Transmission Date: 20130627
  Serious: Yes (Hospitalization)
  Sender: FDA-Public Use
  Company Number: 2012R1-62430

PATIENT
  Age: 62 Year
  Sex: Male

DRUGS (4)
  1. ATENOLOL [Suspect]
     Indication: HYPERTENSION
     Route: 048
  2. ENALAPRIL [Suspect]
     Route: 048
  3. SERTRALINE (SERTRALINE ) [Suspect]
     Route: 048
     Dates: start: 201210, end: 20121102
  4. BENDROFLUMETHIAZIDE [Suspect]
     Route: 048

REACTIONS (1)
  - Inappropriate antidiuretic hormone secretion [None]
